FAERS Safety Report 9384747 (Version 2)
Quarter: 2013Q3

REPORT INFORMATION
  Report Type: Spontaneous
  Country: CH (occurrence: CH)
  Receive Date: 20130705
  Receipt Date: 20130808
  Transmission Date: 20140515
  Serious: Yes (Other)
  Sender: FDA-Public Use
  Company Number: CH-PFIZER INC-2012195355

PATIENT
  Age: 51 Year
  Sex: Male
  Weight: 176 kg

DRUGS (6)
  1. LYRICA [Suspect]
     Indication: ANALGESIC THERAPY
     Dosage: 450 MG, 1X/DAY
     Route: 048
     Dates: start: 20120214, end: 20120917
  2. PARACETAMOL [Concomitant]
     Indication: PAIN
  3. TRYPTIZOL [Concomitant]
  4. METO ZEROK [Concomitant]
     Indication: MYOCARDIAL INFARCTION
     Dosage: 200 MG, 2X/DAY
     Route: 048
  5. ASPIRIN CARDIO [Concomitant]
     Indication: MYOCARDIAL INFARCTION
     Dosage: 100 MG, 1X/DAY
     Route: 048
  6. SIMVASIN SPIRIG [Concomitant]
     Indication: MYOCARDIAL INFARCTION
     Dosage: 40 MG, 1X/DAY
     Route: 048

REACTIONS (2)
  - Gynaecomastia [Not Recovered/Not Resolved]
  - Breast discharge [Not Recovered/Not Resolved]
